FAERS Safety Report 8117231-X (Version None)
Quarter: 2012Q1

REPORT INFORMATION
  Report Type: 
  Country: None (occurrence: None)
  Receive Date: 20120206
  Receipt Date: 20120126
  Transmission Date: 20120608
  Serious: Yes (Hospitalization)
  Sender: FDA-Public Use
  Company Number: FR-ASTRAZENECA-2011SE67919

PATIENT
  Age: 77 Year
  Sex: Female

DRUGS (8)
  1. ACARBOSE [Suspect]
     Route: 048
     Dates: end: 20110605
  2. CARDENTIEL [Concomitant]
  3. ATACAND [Suspect]
     Route: 048
     Dates: end: 20110605
  4. CORDARONE [Concomitant]
  5. FENOFIBRATE [Suspect]
     Route: 048
     Dates: end: 20110605
  6. ALLOPURINOL [Concomitant]
  7. MINI-SINTROM [Concomitant]
  8. LASIX [Suspect]
     Route: 048
     Dates: end: 20110608

REACTIONS (5)
  - METABOLIC ACIDOSIS [None]
  - RENAL FAILURE ACUTE [None]
  - BLOOD CREATININE INCREASED [None]
  - COAGULATION TIME PROLONGED [None]
  - CARDIAC FAILURE [None]
